FAERS Safety Report 4855943-1 (Version None)
Quarter: 2005Q4

REPORT INFORMATION
  Report Type: 
  Country: None (occurrence: None)
  Receive Date: 20051216
  Receipt Date: 20051206
  Transmission Date: 20060501
  Serious: Yes (Death)
  Sender: FDA-Public Use
  Company Number: US-JNJFOC-20051201927

PATIENT
  Sex: Male

DRUGS (2)
  1. FENTANYL [Suspect]
     Route: 062
     Dates: start: 20030101, end: 20050901
  2. FENTANYL [Suspect]
     Route: 062
     Dates: start: 20030101, end: 20050901

REACTIONS (2)
  - COMPLETED SUICIDE [None]
  - OVERDOSE [None]
